FAERS Safety Report 6984562-6 (Version None)
Quarter: 2010Q3

REPORT INFORMATION
  Report Type: 
  Country: None (occurrence: None)
  Receive Date: 20100915
  Receipt Date: 20100903
  Transmission Date: 20110219
  Serious: Yes (Hospitalization, Other)
  Sender: FDA-Public Use
  Company Number: IT-PFIZER INC-2010112179

PATIENT
  Age: 42 Year
  Sex: Male

DRUGS (3)
  1. XANAX [Suspect]
     Indication: DEPRESSION
     Dosage: 3 MG, DAILY
     Route: 048
     Dates: start: 20050101, end: 20100901
  2. TRAMADOL HCL [Suspect]
     Indication: BACK PAIN
     Dosage: 600 MG, TOTAL
     Route: 042
     Dates: start: 20100831, end: 20100901
  3. TRAMADOL HCL [Concomitant]
     Dosage: UNK
     Dates: start: 20050101, end: 20100830

REACTIONS (3)
  - AGGRESSION [None]
  - CONVULSION [None]
  - DRUG TOXICITY [None]
